FAERS Safety Report 4483349-6 (Version None)
Quarter: 2004Q4

REPORT INFORMATION
  Report Type: 
  Country: None (occurrence: None)
  Receive Date: 20041020
  Receipt Date: 20041006
  Transmission Date: 20050328
  Serious: Yes (Hospitalization, Other)
  Sender: FDA-Public Use
  Company Number: A-CH2004-07744

PATIENT
  Age: 39 Year
  Sex: Female
  Weight: 54.5 kg

DRUGS (12)
  1. BOSENTAN [Suspect]
     Indication: PULMONARY HYPERTENSION
     Dosage: SEE IMAGE
     Route: 048
     Dates: start: 20021114, end: 20021120
  2. BOSENTAN [Suspect]
     Indication: PULMONARY HYPERTENSION
     Dosage: SEE IMAGE
     Route: 048
     Dates: start: 20021121, end: 20021211
  3. BOSENTAN [Suspect]
     Indication: PULMONARY HYPERTENSION
     Dosage: SEE IMAGE
     Route: 048
     Dates: start: 20021212
  4. PREDNISOLONE [Concomitant]
  5. ENALAPRIL MALEATE [Concomitant]
  6. ROCALTROL [Concomitant]
  7. JUVELA NICOTINATE (TOCOPHERYL NICOTINATE) [Concomitant]
  8. ADALAT [Concomitant]
  9. MAG-LAX        (MAGNESIUM HYDROXIDE, PARAFIN, LIQUID) [Concomitant]
  10. WARFARIN SODIUM [Concomitant]
  11. ALUMINIUM HYDROXIDE W/MAGNESIUM HYDROXIDE (MAGNESIUM HYDROXIDE, ALUMIN [Concomitant]
  12. SUCRALFATE [Concomitant]

REACTIONS (5)
  - BLOOD LACTATE DEHYDROGENASE INCREASED [None]
  - INTERNATIONAL NORMALISED RATIO DECREASED [None]
  - MENORRHAGIA [None]
  - PLATELET COUNT DECREASED [None]
  - RED BLOOD CELL COUNT DECREASED [None]
